FAERS Safety Report 4346394-7 (Version None)
Quarter: 2004Q2

REPORT INFORMATION
  Report Type: 
  Country: None (occurrence: None)
  Receive Date: 20040426
  Receipt Date: 20031208
  Transmission Date: 20050107
  Serious: No
  Sender: FDA-Public Use
  Company Number: US-GLAXOSMITHKLINE-A0442320A

PATIENT
  Age: 70 Year
  Sex: Female

DRUGS (1)
  1. ZOFRAN [Suspect]
     Indication: ILL-DEFINED DISORDER
     Dosage: 8MG TWICE PER DAY
     Route: 048
     Dates: start: 20031205

REACTIONS (3)
  - CONSTIPATION [None]
  - HEADACHE [None]
  - PARAESTHESIA [None]
